FAERS Safety Report 5384313-5 (Version None)
Quarter: 2007Q3

REPORT INFORMATION
  Report Type: 
  Country: None (occurrence: None)
  Receive Date: 20070711
  Receipt Date: 20060720
  Transmission Date: 20080115
  Serious: No
  Sender: FDA-Public Use
  Company Number: US-AMGEN-KDL187065

PATIENT
  Sex: Female
  Weight: 84.9 kg

DRUGS (7)
  1. KINERET [Suspect]
     Indication: RHEUMATOID ARTHRITIS
     Route: 058
     Dates: start: 20060227
  2. AVANDAMET [Concomitant]
  3. PRILOSEC [Concomitant]
  4. ARAVA [Concomitant]
     Route: 048
  5. PREDNISONE [Concomitant]
  6. XOPENEX [Concomitant]
  7. LASIX [Concomitant]

REACTIONS (1)
  - HERPES ZOSTER [None]
